FAERS Safety Report 11671722 (Version 1)
Quarter: 2015Q4

REPORT INFORMATION
  Report Type: Spontaneous
  Country: US (occurrence: US)
  Receive Date: 20151028
  Receipt Date: 20151028
  Transmission Date: 20160304
  Serious: Yes (Other)
  Sender: FDA-Public Use
  Company Number: PHEH2015US008312

PATIENT
  Sex: Female
  Weight: 45 kg

DRUGS (9)
  1. CYANOCOBALAMIN. [Concomitant]
     Active Substance: CYANOCOBALAMIN
     Indication: FATIGUE
     Dosage: 1000 UG, UNK
     Route: 030
  2. LETROZOLE. [Suspect]
     Active Substance: LETROZOLE
     Indication: BREAST CANCER METASTATIC
     Route: 065
     Dates: start: 20141121
  3. VITAMIN D3 [Concomitant]
     Active Substance: CHOLECALCIFEROL
     Indication: SUPPLEMENTATION THERAPY
     Dosage: 1 DF, QD
     Route: 048
     Dates: start: 20080201
  4. ADVIL [Concomitant]
     Active Substance: IBUPROFEN
     Indication: PAIN
     Dosage: 200 MG, Q8H, PRN
     Route: 048
     Dates: start: 20141023
  5. ASPIRIN. [Concomitant]
     Active Substance: ASPIRIN
     Indication: PRODUCT USED FOR UNKNOWN INDICATION
     Dosage: 1 DF, PRN
     Route: 048
     Dates: start: 20141023
  6. TRAMADOL. [Concomitant]
     Active Substance: TRAMADOL
     Indication: PRODUCT USED FOR UNKNOWN INDICATION
     Route: 065
  7. GABAPENTIN. [Concomitant]
     Active Substance: GABAPENTIN
     Indication: MUSCLE SPASMS
     Dosage: 1 DF, QD
     Route: 048
     Dates: start: 20150111
  8. MELATONIN [Concomitant]
     Active Substance: MELATONIN
     Indication: INSOMNIA
     Dosage: 2 DF, QHS
     Route: 048
     Dates: start: 20110601
  9. MIRTAZAPINE. [Concomitant]
     Active Substance: MIRTAZAPINE
     Indication: DECREASED APPETITE
     Dosage: 1 DF, QD
     Route: 048
     Dates: start: 20150117

REACTIONS (18)
  - Skin haemorrhage [Unknown]
  - Hot flush [Not Recovered/Not Resolved]
  - White blood cell count decreased [Unknown]
  - Underweight [Unknown]
  - Ecchymosis [Unknown]
  - Arthralgia [Unknown]
  - Somnolence [Unknown]
  - Back pain [Unknown]
  - Osteoporosis [Unknown]
  - Dizziness [Unknown]
  - Chest discomfort [Unknown]
  - Nausea [Unknown]
  - Musculoskeletal chest pain [Unknown]
  - Blood pressure decreased [Unknown]
  - Metastases to skin [Unknown]
  - Dyspnoea exertional [Unknown]
  - Heart rate increased [Unknown]
  - Scar [Unknown]
